FAERS Safety Report 12446381 (Version 1)
Quarter: 2016Q2

REPORT INFORMATION
  Report Type: Spontaneous
  Country: US (occurrence: None)
  Receive Date: 20160607
  Receipt Date: 20160607
  Transmission Date: 20160815
  Serious: No
  Sender: FDA-Public Use
  Company Number: None

PATIENT
  Age: 82 Year
  Sex: Male

DRUGS (5)
  1. SPRYCEL [Suspect]
     Active Substance: DASATINIB
     Indication: MYELOID LEUKAEMIA
     Dosage: 1 TAB DAILY PO
     Route: 048
     Dates: start: 201301
  2. ALLOPURINOL. [Concomitant]
     Active Substance: ALLOPURINOL
  3. CANDESARTAN [Concomitant]
     Active Substance: CANDESARTAN
  4. OMPRAZOLE [Concomitant]
     Active Substance: OMEPRAZOLE
  5. FUROSEMIDE. [Concomitant]
     Active Substance: FUROSEMIDE

REACTIONS (1)
  - Oedema [None]

NARRATIVE: CASE EVENT DATE: 201406
